FAERS Safety Report 4668132-0 (Version None)
Quarter: 2005Q2

REPORT INFORMATION
  Report Type: 
  Country: None (occurrence: None)
  Receive Date: 20050521
  Receipt Date: 20041224
  Transmission Date: 20051028
  Serious: Yes (Other)
  Sender: FDA-Public Use
  Company Number: PHEH2004US13664

PATIENT
  Age: 81 Year
  Sex: Male

DRUGS (3)
  1. QUININE SULFATE [Concomitant]
  2. ZOMETA [Suspect]
     Indication: MULTIPLE MYELOMA
     Dosage: UNK, UNK
     Dates: start: 20020701
  3. EPOGEN [Concomitant]

REACTIONS (7)
  - DENTAL TREATMENT [None]
  - FATIGUE [None]
  - IMPAIRED HEALING [None]
  - OPEN WOUND [None]
  - OSTEONECROSIS [None]
  - TOOTH EXTRACTION [None]
  - WOUND DEBRIDEMENT [None]
